FAERS Safety Report 11729797 (Version 1)
Quarter: 2015Q4

REPORT INFORMATION
  Report Type: Spontaneous
  Country: CA (occurrence: CA)
  Receive Date: 20151112
  Receipt Date: 20151112
  Transmission Date: 20160304
  Serious: Yes (Other)
  Sender: FDA-Public Use
  Company Number: CA-TEVA-607818ACC

PATIENT
  Age: 58 Year
  Sex: Female

DRUGS (1)
  1. TEVA-CLARITHROMYCIN [Suspect]
     Active Substance: CLARITHROMYCIN
     Indication: PNEUMONIA
     Dosage: 1000 MILLIGRAM DAILY;
     Route: 048

REACTIONS (2)
  - Vision blurred [Recovered/Resolved]
  - Pain [Recovered/Resolved]
